FAERS Safety Report 8606958-9 (Version None)
Quarter: 2012Q3

REPORT INFORMATION
  Report Type: 
  Country: None (occurrence: None)
  Receive Date: 20120820
  Receipt Date: 20120815
  Transmission Date: 20120928
  Serious: No
  Sender: FDA-Public Use
  Company Number: US-PFIZER INC-2012200551

PATIENT
  Age: 56 Year
  Sex: Male
  Weight: 117 kg

DRUGS (5)
  1. BUMETANIDE [Suspect]
     Dosage: UNK
  2. ADVIL [Suspect]
     Indication: ARTHRALGIA
  3. ADVIL [Suspect]
     Indication: BACK PAIN
  4. LASIX [Suspect]
     Dosage: UNK
  5. ADVIL [Suspect]
     Indication: PAIN IN EXTREMITY
     Dosage: 400 MG, 2X/DAY
     Route: 048
     Dates: start: 20110101, end: 20120815

REACTIONS (3)
  - WEIGHT INCREASED [None]
  - FLUID RETENTION [None]
  - DRUG INEFFECTIVE [None]
